FAERS Safety Report 4458823-9 (Version None)
Quarter: 2004Q3

REPORT INFORMATION
  Report Type: 
  Country: None (occurrence: None)
  Receive Date: 20040922
  Receipt Date: 20040922
  Transmission Date: 20050211
  Serious: Yes (Other)
  Sender: FDA-Public Use
  Company Number: None

PATIENT
  Age: 62 Year
  Sex: Male
  Weight: 111.8 kg

DRUGS (14)
  1. FORMOTEROL 12 MCG CAP MFG SCHERING [Suspect]
     Indication: CHRONIC OBSTRUCTIVE AIRWAYS DISEASE
     Dosage: 12 MCG BID GIVEN PO
     Route: 048
     Dates: start: 20040907, end: 20040910
  2. ACARBOSE [Concomitant]
  3. ALBUTEROL [Concomitant]
  4. AVANDIA [Concomitant]
  5. AMIODARONE [Concomitant]
  6. ASPIRIN [Concomitant]
  7. BUPROPION HCL [Concomitant]
  8. ACIPHEX [Concomitant]
  9. COREG [Concomitant]
  10. ENALAPRIL MALEATE [Concomitant]
  11. FLUNISOLIDE [Concomitant]
  12. GLYBURIDE [Concomitant]
  13. LORATADINE [Concomitant]
  14. ZOCOR [Concomitant]

REACTIONS (1)
  - MEDICATION ERROR [None]
